FAERS Safety Report 5466821-1 (Version None)
Quarter: 2007Q3

REPORT INFORMATION
  Report Type: 
  Country: None (occurrence: None)
  Receive Date: 20070924
  Receipt Date: 20070924
  Transmission Date: 20080115
  Serious: No
  Sender: FDA-Public Use
  Company Number: None

PATIENT
  Age: 24 Year
  Sex: Male
  Weight: 75.2971 kg

DRUGS (1)
  1. HALOPERIDOL [Suspect]
     Dosage: 5 MG  PO
     Route: 048
     Dates: start: 20070627, end: 20070702

REACTIONS (4)
  - BLEPHAROSPASM [None]
  - MUSCULOSKELETAL STIFFNESS [None]
  - PARKINSONISM [None]
  - VISION BLURRED [None]
